FAERS Safety Report 7426800-1 (Version None)
Quarter: 2011Q2

REPORT INFORMATION
  Report Type: 
  Country: None (occurrence: None)
  Receive Date: 20110420
  Receipt Date: 20110413
  Transmission Date: 20111010
  Serious: Yes (Other)
  Sender: FDA-Public Use
  Company Number: GB-BRISTOL-MYERS SQUIBB COMPANY-15676158

PATIENT
  Age: 31 Year
  Sex: Male

DRUGS (1)
  1. ABILIFY [Suspect]
     Dosage: JUL-AUG09 STARTED ABILIFY
     Dates: start: 20090101

REACTIONS (1)
  - PSYCHOTIC DISORDER [None]
